FAERS Safety Report 5281959-X (Version None)
Quarter: 2007Q1

REPORT INFORMATION
  Report Type: 
  Country: None (occurrence: None)
  Receive Date: 20061215
  Receipt Date: 20060824
  Transmission Date: 20070707
  Serious: Yes (Other)
  Sender: FDA-Public Use
  Company Number: HQWYE014328AUG06

PATIENT
  Age: 28 Year
  Sex: Female
  Weight: 68.1 kg

DRUGS (4)
  1. EFFEXOR XR [Suspect]
     Indication: DEPRESSION
     Dosage: SEE IMAGE
     Dates: start: 20060201, end: 20060727
  2. EFFEXOR XR [Suspect]
     Indication: DEPRESSION
     Dosage: SEE IMAGE
     Dates: start: 20060728, end: 20060801
  3. EFFEXOR XR [Suspect]
     Indication: DEPRESSION
     Dosage: SEE IMAGE
     Dates: start: 20060801
  4. XANAX [Concomitant]

REACTIONS (7)
  - ANXIETY [None]
  - DRUG INEFFECTIVE [None]
  - INSOMNIA [None]
  - MOOD SWINGS [None]
  - PANIC ATTACK [None]
  - PHARMACEUTICAL PRODUCT COMPLAINT [None]
  - SUICIDAL IDEATION [None]
